FAERS Safety Report 14532907 (Version 1)
Quarter: 2018Q1

REPORT INFORMATION
  Report Type: Spontaneous
  Country: US (occurrence: US)
  Receive Date: 20180214
  Receipt Date: 20180214
  Transmission Date: 20180509
  Serious: Yes (Other)
  Sender: FDA-Public Use
  Company Number: US-BEH-2018087757

PATIENT
  Age: 13 Year
  Sex: Male

DRUGS (2)
  1. MONONINE [Suspect]
     Active Substance: COAGULATION FACTOR IX HUMAN
     Indication: PROPHYLAXIS
     Dosage: 2 DF, TOT
     Route: 042
     Dates: start: 20180128, end: 20180128
  2. MONONINE [Suspect]
     Active Substance: COAGULATION FACTOR IX HUMAN
     Indication: FACTOR IX DEFICIENCY
     Dosage: 3000 IU, QD
     Route: 042
     Dates: start: 20170821

REACTIONS (1)
  - Haemorrhage [Unknown]

NARRATIVE: CASE EVENT DATE: 20180128
